FAERS Safety Report 9664573 (Version 1)
Quarter: 2013Q4

REPORT INFORMATION
  Report Type: Spontaneous
  Country: US (occurrence: None)
  Receive Date: 20131031
  Receipt Date: 20131031
  Transmission Date: 20140711
  Serious: Yes (Death)
  Sender: FDA-Public Use
  Company Number: None

PATIENT
  Age: 85 Year
  Sex: Male
  Weight: 73.48 kg

DRUGS (1)
  1. EXJADE 500MG NOVARTIS [Suspect]
     Indication: IRON METABOLISM DISORDER
     Route: 048
     Dates: start: 201209, end: 20131019

REACTIONS (1)
  - Cerebrovascular accident [None]
